FAERS Safety Report 18661592 (Version 1)
Quarter: 2020Q4

REPORT INFORMATION
  Report Type: Spontaneous
  Country: DE (occurrence: TW)
  Receive Date: 20201224
  Receipt Date: 20201224
  Transmission Date: 20210114
  Serious: Yes (Other)
  Sender: FDA-Public Use
  Company Number: TW-ELI_LILLY_AND_COMPANY-TW202012011890

PATIENT
  Age: 79 Year
  Sex: Male
  Weight: 53 kg

DRUGS (26)
  1. ERBITUX [Suspect]
     Active Substance: CETUXIMAB
     Dosage: UNK UNK, UNKNOWN
     Route: 041
     Dates: start: 20190514
  2. VINCRISTINE [Concomitant]
     Active Substance: VINCRISTINE
     Dosage: UNK
     Dates: start: 20190604
  3. BLEOMYCIN [Concomitant]
     Active Substance: BLEOMYCIN SULFATE
     Dosage: UNK
     Route: 041
     Dates: start: 20190604
  4. MITOMYCIN. [Concomitant]
     Active Substance: MITOMYCIN
     Indication: TONGUE NEOPLASM MALIGNANT STAGE UNSPECIFIED
     Dosage: 4 MG/M2, UNK
     Route: 041
     Dates: start: 20190429
  5. FLUOROURACIL. [Concomitant]
     Active Substance: FLUOROURACIL
     Dosage: UNK
     Route: 041
     Dates: start: 20190521
  6. BLEOMYCIN [Concomitant]
     Active Substance: BLEOMYCIN SULFATE
     Indication: TONGUE NEOPLASM MALIGNANT STAGE UNSPECIFIED
     Dosage: 10 MG/M2, UNK
     Route: 041
     Dates: start: 20190429
  7. MITOMYCIN. [Concomitant]
     Active Substance: MITOMYCIN
     Dosage: UNK
     Route: 041
     Dates: start: 20190604
  8. ERBITUX [Suspect]
     Active Substance: CETUXIMAB
     Dosage: UNK UNK, UNKNOWN
     Route: 041
     Dates: start: 20190604, end: 20190604
  9. ERBITUX [Suspect]
     Active Substance: CETUXIMAB
     Dosage: UNK UNK, UNKNOWN
     Route: 041
     Dates: start: 20190521
  10. METHOTREXATE. [Concomitant]
     Active Substance: METHOTREXATE
     Dosage: 80 PERCENT DOSE
     Route: 041
     Dates: start: 20190528
  11. ERBITUX [Suspect]
     Active Substance: CETUXIMAB
     Dosage: UNK UNK, OTHER (80% DOSE)
     Route: 041
     Dates: start: 20190528
  12. EPIRUBICIN [Concomitant]
     Active Substance: EPIRUBICIN
     Indication: TONGUE NEOPLASM MALIGNANT STAGE UNSPECIFIED
     Dosage: 30 MG/M2, UNK
     Route: 041
     Dates: start: 20190423
  13. MITOMYCIN. [Concomitant]
     Active Substance: MITOMYCIN
     Dosage: UNK
     Route: 041
     Dates: start: 20190521
  14. ERBITUX [Suspect]
     Active Substance: CETUXIMAB
     Indication: TONGUE NEOPLASM MALIGNANT STAGE UNSPECIFIED
     Dosage: 400 MG/M2, UNKNOWN
     Route: 041
     Dates: start: 20190429
  15. CISPLATIN. [Concomitant]
     Active Substance: CISPLATIN
     Dosage: UNK
     Route: 041
     Dates: start: 20190604
  16. FLUOROURACIL. [Concomitant]
     Active Substance: FLUOROURACIL
     Dosage: UNK
     Route: 041
     Dates: start: 20190604
  17. METHOTREXATE. [Concomitant]
     Active Substance: METHOTREXATE
     Indication: TONGUE NEOPLASM MALIGNANT STAGE UNSPECIFIED
     Dosage: 30 MG/M2, UNK
     Route: 041
     Dates: start: 20190423
  18. VINCRISTINE [Concomitant]
     Active Substance: VINCRISTINE
     Indication: TONGUE NEOPLASM MALIGNANT STAGE UNSPECIFIED
     Dosage: 1 MG/M2, UNK
     Route: 041
     Dates: start: 20190429
  19. CISPLATIN. [Concomitant]
     Active Substance: CISPLATIN
     Indication: TONGUE NEOPLASM MALIGNANT STAGE UNSPECIFIED
     Dosage: 25 MG/M2, UNK
     Route: 041
     Dates: start: 20190429
  20. FLUOROURACIL. [Concomitant]
     Active Substance: FLUOROURACIL
     Indication: TONGUE NEOPLASM MALIGNANT STAGE UNSPECIFIED
     Dosage: 1000 MG/M2, UNK
     Route: 041
     Dates: start: 20190429
  21. EPIRUBICIN [Concomitant]
     Active Substance: EPIRUBICIN
     Dosage: 80 PERCENT DOSE
     Route: 041
     Dates: start: 20190528
  22. VINCRISTINE [Concomitant]
     Active Substance: VINCRISTINE
     Dosage: UNK
     Dates: start: 20190521
  23. BLEOMYCIN [Concomitant]
     Active Substance: BLEOMYCIN SULFATE
     Dosage: UNK
     Route: 041
     Dates: start: 20190521
  24. CISPLATIN. [Concomitant]
     Active Substance: CISPLATIN
     Dosage: UNK
     Route: 041
     Dates: start: 20190521
  25. METHOTREXATE. [Concomitant]
     Active Substance: METHOTREXATE
     Dosage: 80 PERCENT DOSE
     Route: 041
     Dates: start: 20190514
  26. EPIRUBICIN [Concomitant]
     Active Substance: EPIRUBICIN
     Dosage: 80 PERCENT DOSE
     Route: 041
     Dates: start: 20190514

REACTIONS (1)
  - White blood cell count decreased [Recovered/Resolved]

NARRATIVE: CASE EVENT DATE: 20190606
